FAERS Safety Report 16081590 (Version 1)
Quarter: 2019Q1

REPORT INFORMATION
  Report Type: Spontaneous
  Country: US (occurrence: US)
  Receive Date: 20190316
  Receipt Date: 20190316
  Transmission Date: 20190418
  Serious: Yes (Death)
  Sender: FDA-Public Use
  Company Number: US-NEXGEN PHARMA, INC.-2064113

PATIENT
  Age: 68 Year
  Sex: Female

DRUGS (1)
  1. CHENODAL [Suspect]
     Active Substance: CHENODIOL
     Indication: LIPIDS ABNORMAL
     Route: 048
     Dates: start: 20100414

REACTIONS (1)
  - Death [Fatal]
